FAERS Safety Report 11886782 (Version 1)
Quarter: 2016Q1

REPORT INFORMATION
  Report Type: Spontaneous
  Country: US (occurrence: US)
  Receive Date: 20160104
  Receipt Date: 20160104
  Transmission Date: 20160526
  Serious: No
  Sender: FDA-Public Use
  Company Number: US-TOLMAR INC.-1046100

PATIENT
  Age: 66 Year
  Sex: Male
  Weight: 65.91 kg

DRUGS (5)
  1. DICLOFENAC SODIUM GEL, 3% [Suspect]
     Active Substance: DICLOFENAC SODIUM
     Route: 061
  2. NEXIUM [Concomitant]
     Active Substance: ESOMEPRAZOLE MAGNESIUM
     Route: 048
     Dates: start: 2010
  3. GABAPENTIN. [Concomitant]
     Active Substance: GABAPENTIN
     Route: 048
     Dates: start: 201510, end: 20151202
  4. FLECTOR [Concomitant]
     Active Substance: DICLOFENAC EPOLAMINE
     Route: 061
     Dates: start: 20151203
  5. LOSARTAN AND HYDROCHLOROTHIAZIDE [Concomitant]
     Active Substance: HYDROCHLOROTHIAZIDE\LOSARTAN POTASSIUM
     Route: 048
     Dates: start: 2010

REACTIONS (1)
  - Drug ineffective [Unknown]
